FAERS Safety Report 22359397 (Version 2)
Quarter: 2023Q2

REPORT INFORMATION
  Report Type: Spontaneous
  Country: QA (occurrence: US)
  Receive Date: 20230524
  Receipt Date: 20230607
  Transmission Date: 20230722
  Serious: Yes (Hospitalization, Other)
  Sender: FDA-Public Use
  Company Number: QA-AUROBINDO-AUR-APL-2023-037420

PATIENT
  Age: 50 Year
  Sex: Female

DRUGS (1)
  1. CLOZAPINE [Suspect]
     Active Substance: CLOZAPINE
     Indication: Product used for unknown indication
     Dosage: UNK
     Route: 065

REACTIONS (6)
  - Fall [Unknown]
  - SARS-CoV-2 test [Unknown]
  - Bipolar disorder [Unknown]
  - Schizophrenia [Unknown]
  - Aggression [Unknown]
  - Mania [Unknown]
